FAERS Safety Report 5808950-6 (Version None)
Quarter: 2008Q3

REPORT INFORMATION
  Report Type: 
  Country: None (occurrence: None)
  Receive Date: 20080710
  Receipt Date: 20080710
  Transmission Date: 20090109
  Serious: No
  Sender: FDA-Public Use
  Company Number: None

PATIENT
  Age: 89 Year
  Sex: Female
  Weight: 75.7507 kg

DRUGS (1)
  1. ARICEPT [Suspect]
     Indication: DEMENTIA ALZHEIMER'S TYPE
     Dosage: 1 DAILY PO
     Route: 048
     Dates: start: 20080605, end: 20080630

REACTIONS (3)
  - DIZZINESS [None]
  - FALL [None]
  - GAIT DISTURBANCE [None]
